FAERS Safety Report 5508718-4 (Version None)
Quarter: 2007Q4

REPORT INFORMATION
  Report Type: 
  Country: None (occurrence: None)
  Receive Date: 20071105
  Receipt Date: 20071024
  Transmission Date: 20080405
  Serious: Yes (Hospitalization)
  Sender: FDA-Public Use
  Company Number: 2007-165773-NL

PATIENT
  Age: 34 Year
  Sex: Female

DRUGS (8)
  1. PUREGON [Suspect]
     Indication: IN VITRO FERTILISATION
     Dosage: 450 IU DAILY SUBCUTANEOUS
     Route: 058
     Dates: start: 20060801
  2. ORGALUTRAN [Suspect]
     Indication: IN VITRO FERTILISATION
     Dosage: SUBCUTANEOUS
     Route: 058
     Dates: start: 20060801
  3. CHORIONIC GONADOTROPIN [Suspect]
     Indication: OVULATION INDUCTION
     Dosage: 10000 IU ONCE SUBCUTANEOUS
     Route: 058
     Dates: start: 20060101
  4. PROMETRIUM [Suspect]
     Indication: IN VITRO FERTILISATION
     Dosage: 100 MG DAILY
  5. MENOPUR [Suspect]
     Indication: IN VITRO FERTILISATION
     Dosage: 75 IU DAILY SUBCUTANEOUS
     Route: 058
     Dates: start: 20060801
  6. FEMTRACE [Concomitant]
  7. PROGESTERONE [Concomitant]
  8. PRENATAL VITAMINS [Concomitant]

REACTIONS (1)
  - DEEP VEIN THROMBOSIS [None]
